FAERS Safety Report 23028519 (Version 3)
Quarter: 2023Q4

REPORT INFORMATION
  Report Type: Spontaneous
  Country: US (occurrence: US)
  Receive Date: 20231004
  Receipt Date: 20231117
  Transmission Date: 20240110
  Serious: Yes (Hospitalization, Other)
  Sender: FDA-Public Use
  Company Number: US-AMERICAN REGENT INC-2023002325

PATIENT
  Age: 43 Year
  Sex: Female

DRUGS (3)
  1. VENOFER [Suspect]
     Active Substance: IRON SUCROSE
     Indication: Iron deficiency anaemia
     Dosage: 100 MILLIGRAM IN NS 250 ML
     Route: 042
     Dates: start: 20230630, end: 20230630
  2. VENOFER [Suspect]
     Active Substance: IRON SUCROSE
     Dosage: 200 MILLIGRAM IN NS 250 ML
     Route: 042
     Dates: start: 20230630, end: 20230630
  3. RIMEGEPANT [Concomitant]
     Active Substance: RIMEGEPANT
     Indication: Headache
     Dosage: UNK
     Route: 048

REACTIONS (10)
  - Livedo reticularis [Recovered/Resolved]
  - Burning sensation [Recovered/Resolved]
  - Hyperhidrosis [Recovered/Resolved]
  - Dizziness [Recovered/Resolved]
  - Nausea [Recovered/Resolved]
  - Abdominal pain [Recovering/Resolving]
  - Back pain [Recovering/Resolving]
  - Abdominal pain upper [Recovered/Resolved]
  - Arthralgia [Not Recovered/Not Resolved]
  - Product quality issue [Unknown]

NARRATIVE: CASE EVENT DATE: 20230630
